FAERS Safety Report 7887823-1 (Version None)
Quarter: 2011Q4

REPORT INFORMATION
  Report Type: 
  Country: None (occurrence: None)
  Receive Date: 20111101
  Receipt Date: 20111027
  Transmission Date: 20120403
  Serious: Yes (Other)
  Sender: FDA-Public Use
  Company Number: AUR-APL-2011-05613

PATIENT
  Age: 75 Year
  Sex: Male

DRUGS (1)
  1. MIRTAZAPINE [Suspect]
     Indication: AGITATED DEPRESSION
     Dosage: 45 MG (45 MG, 1 IN	1 D), ORAL
     Route: 048
     Dates: start: 20111007

REACTIONS (2)
  - FREE PROSTATE-SPECIFIC ANTIGEN POSITIVE [None]
  - URINARY RETENTION [None]
